FAERS Safety Report 14507843 (Version 1)
Quarter: 2018Q1

REPORT INFORMATION
  Report Type: Spontaneous
  Country: US (occurrence: US)
  Receive Date: 20180208
  Receipt Date: 20180208
  Transmission Date: 20180509
  Serious: No
  Sender: FDA-Public Use
  Company Number: US-TEVA-2018-US-848758

PATIENT
  Sex: Female

DRUGS (1)
  1. AMILORIDE W/HYDROCHLOROTHIAZIDE [Suspect]
     Active Substance: AMLODIPINE\HYDROCHLOROTHIAZIDE\OLMESARTAN
     Route: 065

REACTIONS (2)
  - Product colour issue [Unknown]
  - Fluid retention [Unknown]
